FAERS Safety Report 25592144 (Version 1)
Quarter: 2025Q3

REPORT INFORMATION
  Report Type: Spontaneous
  Country: US (occurrence: US)
  Receive Date: 20250722
  Receipt Date: 20250722
  Transmission Date: 20251021
  Serious: Yes (Other)
  Sender: ALEXION PHARMACEUTICALS
  Company Number: US-ASTRAZENECA-202507GLO012414US

PATIENT
  Sex: Male

DRUGS (20)
  1. NEXIUM [Suspect]
     Active Substance: ESOMEPRAZOLE MAGNESIUM
  2. VENLAFAXINE [Concomitant]
     Active Substance: VENLAFAXINE HYDROCHLORIDE
  3. GABAPENTIN [Concomitant]
     Active Substance: GABAPENTIN
  4. DIVALPROEX SODIUM [Concomitant]
     Active Substance: DIVALPROEX SODIUM
  5. METFORMIN [Concomitant]
     Active Substance: METFORMIN HYDROCHLORIDE
  6. TRAZODONE [Concomitant]
     Active Substance: TRAZODONE HYDROCHLORIDE
  7. INSULIN DETEMIR [Concomitant]
     Active Substance: INSULIN DETEMIR
  8. DAPAGLIFLOZIN [Concomitant]
     Active Substance: DAPAGLIFLOZIN
  9. LISINOPRIL [Concomitant]
     Active Substance: LISINOPRIL
  10. ARISTADA [Concomitant]
     Active Substance: ARIPIPRAZOLE LAUROXIL
  11. CLONAZEPAM [Concomitant]
     Active Substance: CLONAZEPAM
  12. TRULICITY [Concomitant]
     Active Substance: DULAGLUTIDE
  13. PROLIXIN [Concomitant]
     Active Substance: FLUPHENAZINE HYDROCHLORIDE
  14. HALOPERIDOL [Concomitant]
     Active Substance: HALOPERIDOL
  15. ROSUVASTATIN [Concomitant]
     Active Substance: ROSUVASTATIN
  16. OMEPRAZOLE [Concomitant]
     Active Substance: OMEPRAZOLE
  17. VENLAFAXINE HYDROCHLORIDE [Concomitant]
     Active Substance: VENLAFAXINE HYDROCHLORIDE
  18. ACETAMINOPHEN [Concomitant]
     Active Substance: ACETAMINOPHEN
  19. FLUTICASONE PROPIONATE [Concomitant]
     Active Substance: FLUTICASONE PROPIONATE
  20. NALTREXONE [Concomitant]
     Active Substance: NALTREXONE

REACTIONS (2)
  - Gastrointestinal neuroendocrine tumour [Unknown]
  - Gastric cancer [Unknown]
